FAERS Safety Report 14925807 (Version 10)
Quarter: 2022Q2

REPORT INFORMATION
  Report Type: Report from Study
  Country: DE (occurrence: DE)
  Receive Date: 20180522
  Receipt Date: 20220624
  Transmission Date: 20220721
  Serious: Yes (Hospitalization, Other)
  Sender: FDA-Public Use
  Company Number: DE-GILEAD-2018-0339095

PATIENT
  Sex: Female
  Weight: 68 kg

DRUGS (19)
  1. SOFOSBUVIR [Suspect]
     Active Substance: SOFOSBUVIR
     Indication: Chronic hepatitis C
     Dosage: 400 MG, QD
     Route: 048
     Dates: start: 20150702, end: 20150924
  2. DAKLINZA [Suspect]
     Active Substance: DACLATASVIR
     Indication: Chronic hepatitis C
     Dosage: 60 MG, QD
     Route: 048
     Dates: start: 20150702, end: 20150924
  3. HYALURONIC ACID [Concomitant]
     Active Substance: HYALURONIC ACID
     Dosage: 30 MG, UNK
     Dates: start: 20150201
  4. CHOLECALCIFEROL [Concomitant]
     Active Substance: CHOLECALCIFEROL
     Dosage: 2000 IU, Q1WK
  5. GELATIN [Concomitant]
     Active Substance: GELATIN
     Dosage: UNK UNK, QD
     Dates: start: 20150625
  6. TRAUMEEL [ACHILLEA MILLEFOLIUM;ACONITUM NAPELLUS;ARNICA MONTANA;ATROPA [Concomitant]
     Dosage: UNK
     Dates: start: 20150521, end: 20150702
  7. ZEEL [HOMEOPATHICS NOS] [Concomitant]
     Dosage: UNK
     Dates: start: 20150715, end: 20150715
  8. VOLTAREN [Concomitant]
     Active Substance: DICLOFENAC SODIUM
     Dosage: UNK UNK, PRN
  9. DULCOLAX (BISACODYL) [Concomitant]
     Active Substance: BISACODYL
     Dosage: UNK
     Dates: start: 20140701, end: 20150713
  10. FISH OIL [Concomitant]
     Active Substance: FISH OIL
     Dosage: 1000 MG, UNK
  11. MOVICOL [Concomitant]
     Active Substance: POLYETHYLENE GLYCOL 3350\POTASSIUM CHLORIDE\SODIUM BICARBONATE\SODIUM CHLORIDE
     Dosage: UNK
     Dates: start: 20150716
  12. TORSEMIDE [Concomitant]
     Active Substance: TORSEMIDE
     Dosage: 10 MG, UNK
  13. FRESUBIN ORIGINAL [Concomitant]
  14. TORSEMIDE [Concomitant]
     Active Substance: TORSEMIDE
  15. MCP [Concomitant]
     Active Substance: METOCLOPRAMIDE HYDROCHLORIDE
  16. ATEZOLIZUMAB [Concomitant]
     Active Substance: ATEZOLIZUMAB
  17. BEVACIZUMAB [Concomitant]
     Active Substance: BEVACIZUMAB
  18. BISOPROLOL [Concomitant]
     Active Substance: BISOPROLOL
  19. SORAFENIB [Concomitant]
     Active Substance: SORAFENIB

REACTIONS (7)
  - Hepatocellular carcinoma [Unknown]
  - Hepatocellular carcinoma [Recovered/Resolved]
  - Hepatocellular carcinoma [Not Recovered/Not Resolved]
  - Gastrointestinal haemorrhage [Recovered/Resolved]
  - Pyrexia [Unknown]
  - Localised infection [Recovering/Resolving]
  - Product dose omission issue [Recovered/Resolved]

NARRATIVE: CASE EVENT DATE: 20150702
